FAERS Safety Report 23511444 (Version 2)
Quarter: 2024Q1

REPORT INFORMATION
  Report Type: Spontaneous
  Country: CN (occurrence: CN)
  Receive Date: 20240212
  Receipt Date: 20240220
  Transmission Date: 20240410
  Serious: Yes (Death)
  Sender: FDA-Public Use
  Company Number: CN-BAYER-2024A023180

PATIENT
  Age: 82 Year
  Sex: Female
  Weight: 40 kg

DRUGS (1)
  1. XARELTO [Suspect]
     Active Substance: RIVAROXABAN
     Indication: Venous thrombosis limb
     Dosage: 20 MG, QD
     Route: 048
     Dates: start: 20200802, end: 20200802

REACTIONS (5)
  - Death [Fatal]
  - Vaginal haemorrhage [Recovering/Resolving]
  - Inappropriate schedule of product administration [Unknown]
  - Incorrect dose administered [Unknown]
  - Product prescribing issue [Unknown]

NARRATIVE: CASE EVENT DATE: 20200802
